FAERS Safety Report 19689042 (Version 1)
Quarter: 2021Q3

REPORT INFORMATION
  Report Type: Other
  Country: CN (occurrence: CN)
  Receive Date: 20210812
  Receipt Date: 20210812
  Transmission Date: 20211014
  Serious: Yes (Other)
  Sender: FDA-Public Use
  Company Number: CN-ROCHE-2110945

PATIENT
  Age: 66 Year
  Sex: Male
  Weight: 67 kg

DRUGS (1)
  1. AVASTIN [Suspect]
     Active Substance: BEVACIZUMAB
     Indication: COLORECTAL CANCER
     Route: 041
     Dates: start: 20170206, end: 20201223

REACTIONS (5)
  - Pancreatitis [Unknown]
  - Renal impairment [Unknown]
  - Herpes zoster [Unknown]
  - Immunodeficiency [Unknown]
  - Protein urine present [Unknown]

NARRATIVE: CASE EVENT DATE: 20190218
